FAERS Safety Report 19089279 (Version 2)
Quarter: 2021Q4

REPORT INFORMATION
  Report Type: Report from Study
  Country: KE (occurrence: KE)
  Receive Date: 20210403
  Receipt Date: 20211231
  Transmission Date: 20220303
  Serious: Yes (Hospitalization, Other)
  Sender: FDA-Public Use
  Company Number: KE-CIPLA LTD.-2021KE02478

PATIENT

DRUGS (2)
  1. LOPINAVIR\RITONAVIR [Suspect]
     Active Substance: LOPINAVIR\RITONAVIR
     Indication: HIV infection
     Dosage: 480/120 MG, BID
     Route: 048
     Dates: start: 20160503, end: 20180809
  2. BACTRIM [Concomitant]
     Active Substance: SULFAMETHOXAZOLE\TRIMETHOPRIM
     Indication: Prophylaxis
     Dosage: 960 MG, UNK
     Route: 065

REACTIONS (12)
  - Upper respiratory tract infection [Recovered/Resolved]
  - Malaria [Recovered/Resolved]
  - Enteritis [Recovered/Resolved]
  - Dermatitis atopic [Recovered/Resolved]
  - Fungal infection [Recovered/Resolved]
  - Dermatitis [Recovered/Resolved]
  - Bacterial infection [Recovered/Resolved]
  - Gastroenteritis [Recovered/Resolved]
  - Fungal skin infection [Recovered/Resolved]
  - Rhinorrhoea [Recovered/Resolved]
  - Tinea capitis [Not Recovered/Not Resolved]
  - Anaemia [Recovered/Resolved]

NARRATIVE: CASE EVENT DATE: 20160531
